FAERS Safety Report 7733916-9 (Version None)
Quarter: 2011Q3

REPORT INFORMATION
  Report Type: 
  Country: None (occurrence: None)
  Receive Date: 20110907
  Receipt Date: 20110829
  Transmission Date: 20111222
  Serious: Yes (Hospitalization, Other)
  Sender: FDA-Public Use
  Company Number: JP-SANOFI-AVENTIS-2011SA047827

PATIENT
  Age: 32 Year
  Sex: Female

DRUGS (8)
  1. DEPAS [Concomitant]
     Dates: start: 20080331, end: 20080412
  2. ZOLPIDEM [Suspect]
     Route: 048
     Dates: start: 20080314, end: 20080327
  3. LUVOX [Suspect]
     Indication: DEPRESSIVE SYMPTOM
     Route: 048
     Dates: start: 20080229, end: 20080412
  4. MOTILIUM [Concomitant]
     Indication: NAUSEA
     Dates: start: 20080314, end: 20080412
  5. PAXIL [Suspect]
     Indication: DEPRESSIVE SYMPTOM
     Route: 048
     Dates: start: 20080331, end: 20080412
  6. STROCAIN [Concomitant]
     Indication: NAUSEA
     Dates: start: 20080314, end: 20080412
  7. DEPAS [Concomitant]
     Indication: DEPRESSIVE SYMPTOM
     Dates: start: 20080331, end: 20080412
  8. LENDORMIN [Concomitant]
     Dates: start: 20080331, end: 20080412

REACTIONS (1)
  - LIVER DISORDER [None]
